FAERS Safety Report 5132339-9 (Version None)
Quarter: 2006Q4

REPORT INFORMATION
  Report Type: 
  Country: None (occurrence: None)
  Receive Date: 20061023
  Receipt Date: 20061009
  Transmission Date: 20070319
  Serious: Yes (Hospitalization, Other)
  Sender: FDA-Public Use
  Company Number: PHHO2006AT16969

PATIENT
  Sex: Female

DRUGS (6)
  1. LEPONEX [Suspect]
     Indication: SCHIZOPHRENIA, PARANOID TYPE
     Dosage: 400MG
     Route: 048
     Dates: start: 20041231, end: 20050601
  2. LEPONEX [Suspect]
     Dosage: 250MG
     Route: 048
     Dates: start: 20050901
  3. LEPONEX [Suspect]
     Dosage: STEP BY STEP DOWN
     Route: 048
     Dates: start: 20050701, end: 20050901
  4. ABILIFY [Suspect]
     Dosage: 5MG
     Route: 048
     Dates: start: 20050701, end: 20050901
  5. ABILIFY [Suspect]
     Dosage: 10MG
     Dates: start: 20050901, end: 20051012
  6. ABILIFY [Suspect]
     Dosage: 5MG
     Dates: start: 20051012, end: 20051027

REACTIONS (4)
  - DRUG INTERACTION [None]
  - DRUG LEVEL INCREASED [None]
  - DRUG WITHDRAWAL SYNDROME [None]
  - PSYCHOTIC DISORDER [None]
